FAERS Safety Report 5847718-1 (Version None)
Quarter: 2008Q3

REPORT INFORMATION
  Report Type: 
  Country: None (occurrence: None)
  Receive Date: 20080814
  Receipt Date: 20080808
  Transmission Date: 20090109
  Serious: Yes (Death, Hospitalization)
  Sender: FDA-Public Use
  Company Number: US024336

PATIENT
  Age: 73 Year
  Sex: Female

DRUGS (1)
  1. TRISENOX [Suspect]
     Indication: ACUTE PROMYELOCYTIC LEUKAEMIA
     Dosage: 10.35 MG INTRAVENOUS DRIP
     Route: 041
     Dates: start: 20080626, end: 20080711

REACTIONS (3)
  - ENCEPHALITIS [None]
  - INFECTION [None]
  - LUNG DISORDER [None]
